FAERS Safety Report 7671037-4 (Version None)
Quarter: 2011Q3

REPORT INFORMATION
  Report Type: 
  Country: None (occurrence: None)
  Receive Date: 20110805
  Receipt Date: 20110805
  Transmission Date: 20111222
  Serious: Yes (Other)
  Sender: FDA-Public Use
  Company Number: None

PATIENT
  Age: 68 Year
  Sex: Male

DRUGS (4)
  1. HYDROCODONE BITARTRATE AND ACETAMINOPHEN [Concomitant]
  2. REVLIMID [Suspect]
     Indication: AMYLOIDOSIS
     Dosage: REVLIMID 5 MG DAILY X21D/28D ORALLY
     Route: 048
     Dates: start: 20100901, end: 20110701
  3. NORTRIPTYLINE HCL [Concomitant]
  4. FUROSEMIDE [Concomitant]

REACTIONS (3)
  - DRUG INEFFECTIVE [None]
  - AMYLOIDOSIS [None]
  - DISEASE PROGRESSION [None]
